FAERS Safety Report 8157745-X (Version None)
Quarter: 2012Q1

REPORT INFORMATION
  Report Type: 
  Country: None (occurrence: None)
  Receive Date: 20120222
  Receipt Date: 20120216
  Transmission Date: 20120608
  Serious: No
  Sender: FDA-Public Use
  Company Number: US-PFIZER INC-2012043282

PATIENT

DRUGS (5)
  1. HYDROCHLOROTHIAZIDE [Suspect]
     Dosage: UNK
  2. NORVASC [Suspect]
     Dosage: UNK
  3. ACETYLSALICYLIC ACID SRT [Suspect]
     Dosage: UNK
  4. NEURONTIN [Suspect]
     Dosage: UNK
  5. LISINOPRIL [Suspect]
     Dosage: UNK

REACTIONS (1)
  - DRUG HYPERSENSITIVITY [None]
